FAERS Safety Report 10020590 (Version 1)
Quarter: 2014Q1

REPORT INFORMATION
  Report Type: Spontaneous
  Country: DK (occurrence: DK)
  Receive Date: 20140319
  Receipt Date: 20140319
  Transmission Date: 20141002
  Serious: Yes (Hospitalization)
  Sender: FDA-Public Use
  Company Number: PHHY2014DK029493

PATIENT
  Age: 54 Year
  Sex: Female
  Weight: 80 kg

DRUGS (2)
  1. DICILLIN [Suspect]
     Indication: SOFT TISSUE INFECTION
     Dosage: 1 G, TID
     Route: 048
     Dates: start: 20131111, end: 20131121
  2. WELLBUTRIN [Suspect]
     Indication: EX-TOBACCO USER
     Dosage: 150 MG, QD
     Dates: start: 20131111, end: 20131111

REACTIONS (5)
  - Dermatitis allergic [Recovering/Resolving]
  - Pruritus [Recovering/Resolving]
  - Eye swelling [Recovered/Resolved]
  - Pharyngeal oedema [Recovered/Resolved]
  - Swelling face [Recovered/Resolved]
